FAERS Safety Report 7296976-8 (Version None)
Quarter: 2011Q1

REPORT INFORMATION
  Report Type: 
  Country: None (occurrence: None)
  Receive Date: 20110204
  Receipt Date: 20110124
  Transmission Date: 20110831
  Serious: Yes (Hospitalization)
  Sender: FDA-Public Use
  Company Number: 2011MA000810

PATIENT
  Age: 74 Year
  Sex: Female

DRUGS (8)
  1. SYMBICORT [Concomitant]
  2. SIMVASTATIN [Concomitant]
  3. BISOPROLOL (BISOPROLOL) [Suspect]
     Indication: PRODUCT USED FOR UNKNOWN INDICATION
     Dosage: ; PO
     Route: 048
     Dates: end: 20090106
  4. VERAPAMIL [Suspect]
     Indication: ESSENTIAL HYPERTENSION
     Dosage: ; PO
     Route: 048
     Dates: end: 20090106
  5. SPIRIVA [Concomitant]
  6. RAMIPRIL [Suspect]
     Indication: ESSENTIAL HYPERTENSION
     Dosage: ; PO
     Route: 048
     Dates: start: 20080501
  7. WARAN [Concomitant]
  8. FURIX (FUROSEMIDE) [Suspect]
     Indication: ESSENTIAL HYPERTENSION
     Dosage: ; PO
     Route: 048
     Dates: start: 20080501

REACTIONS (6)
  - ACUTE PRERENAL FAILURE [None]
  - BLOOD CREATININE INCREASED [None]
  - DIZZINESS [None]
  - HYPERKALAEMIA [None]
  - BRADYARRHYTHMIA [None]
  - HYPOVOLAEMIA [None]
